FAERS Safety Report 17006973 (Version 1)
Quarter: 2019Q4

REPORT INFORMATION
  Report Type: Spontaneous
  Country: US (occurrence: US)
  Receive Date: 20191106
  Receipt Date: 20191106
  Transmission Date: 20200122
  Serious: No
  Sender: FDA-Public Use
  Company Number: None

PATIENT
  Age: 4 Year
  Sex: Female
  Weight: 12.6 kg

DRUGS (2)
  1. VITAMIN [Concomitant]
     Active Substance: VITAMINS
  2. RANITIDINE 75MG/5ML (SYRUP) [Suspect]
     Active Substance: RANITIDINE HYDROCHLORIDE
     Indication: GASTROOESOPHAGEAL REFLUX DISEASE
     Dosage: ?          QUANTITY:1 ML;?
     Route: 048
     Dates: start: 20190301, end: 20191106

REACTIONS (2)
  - Recalled product administered [None]
  - Abdominal pain upper [None]

NARRATIVE: CASE EVENT DATE: 20191106
